FAERS Safety Report 8681882 (Version 3)
Quarter: 2013Q4

REPORT INFORMATION
  Report Type: Spontaneous
  Country: US (occurrence: US)
  Receive Date: 20120725
  Receipt Date: 20131101
  Transmission Date: 20140711
  Serious: No
  Sender: FDA-Public Use
  Company Number: US-009507513-2012SP010524

PATIENT
  Sex: Female

DRUGS (4)
  1. SAPHRIS [Suspect]
     Indication: BIPOLAR DISORDER
     Dosage: 20 MG, HS
     Route: 060
     Dates: start: 20110317
  2. XANAX [Concomitant]
     Dosage: 2 MG, TID
  3. GABAPENTIN [Concomitant]
     Dosage: 1200 MG, QD
  4. PROZOSIN [Concomitant]
     Dosage: 1 MG, UNK

REACTIONS (1)
  - Gingival inflammation [Recovering/Resolving]
